FAERS Safety Report 14998490 (Version 1)
Quarter: 2018Q2

REPORT INFORMATION
  Report Type: Spontaneous
  Country: DE (occurrence: DE)
  Receive Date: 20180612
  Receipt Date: 20180612
  Transmission Date: 20180711
  Serious: Yes (Hospitalization)
  Sender: FDA-Public Use
  Company Number: DE-ROCHE-2136700

PATIENT
  Age: 75 Year
  Sex: Female

DRUGS (2)
  1. OBINUTUZUMAB. [Suspect]
     Active Substance: OBINUTUZUMAB
     Indication: PRODUCT USED FOR UNKNOWN INDICATION
     Dosage: 5 CYCLES GIVEN
     Route: 042
     Dates: start: 20171215
  2. BENDAMUSTINE [Concomitant]
     Active Substance: BENDAMUSTINE

REACTIONS (6)
  - Cytomegalovirus infection [Unknown]
  - Sepsis [Unknown]
  - Cytomegalovirus colitis [Unknown]
  - Heart rate decreased [Unknown]
  - Haematochezia [Unknown]
  - Cardiogenic shock [Unknown]
